FAERS Safety Report 6663056-1 (Version None)
Quarter: 2010Q1

REPORT INFORMATION
  Report Type: 
  Country: None (occurrence: None)
  Receive Date: 20100322
  Receipt Date: 20090211
  Transmission Date: 20100710
  Serious: Yes (Other)
  Sender: FDA-Public Use
  Company Number: 2009EN000031

PATIENT
  Age: 12 Year
  Sex: Female

DRUGS (1)
  1. ONCASPAR [Suspect]
     Indication: DRUG USE FOR UNKNOWN INDICATION

REACTIONS (5)
  - ANAPHYLACTIC REACTION [None]
  - COUGH [None]
  - RASH [None]
  - THROAT IRRITATION [None]
  - THROAT TIGHTNESS [None]
